FAERS Safety Report 7700781-5 (Version None)
Quarter: 2011Q3

REPORT INFORMATION
  Report Type: 
  Country: None (occurrence: None)
  Receive Date: 20110822
  Receipt Date: 20110817
  Transmission Date: 20111222
  Serious: Yes (Hospitalization, Other)
  Sender: FDA-Public Use
  Company Number: US-PFIZER INC-2010006383

PATIENT
  Sex: Female

DRUGS (2)
  1. CHANTIX [Suspect]
     Dosage: STARTING PACK
     Dates: start: 20080101, end: 20080201
  2. CHANTIX [Suspect]
     Indication: SMOKING CESSATION THERAPY
     Dosage: STARTING PACK
     Dates: start: 20070301, end: 20070501

REACTIONS (4)
  - DEPRESSION [None]
  - MEMORY IMPAIRMENT [None]
  - SUICIDE ATTEMPT [None]
  - INTENTIONAL OVERDOSE [None]
